FAERS Safety Report 18131058 (Version 1)
Quarter: 2020Q3

REPORT INFORMATION
  Report Type: Report from Study
  Country: US (occurrence: US)
  Receive Date: 20200810
  Receipt Date: 20200810
  Transmission Date: 20201103
  Serious: Yes (Other)
  Sender: FDA-Public Use
  Company Number: US-INDIVIOR LIMITED-INDV-125810-2020

PATIENT
  Age: 48 Year
  Sex: Female

DRUGS (1)
  1. SUBLOCADE [Suspect]
     Active Substance: BUPRENORPHINE
     Indication: DRUG DEPENDENCE
     Dosage: 300 MILLIGRAM, QMO
     Route: 058
     Dates: start: 2020

REACTIONS (7)
  - Loss of consciousness [Unknown]
  - Back pain [Not Recovered/Not Resolved]
  - Skin irritation [Unknown]
  - Hyperhidrosis [Unknown]
  - Rash [Unknown]
  - Illness [Recovered/Resolved]
  - Pruritus [Unknown]

NARRATIVE: CASE EVENT DATE: 2020
